FAERS Safety Report 7954533-1 (Version None)
Quarter: 2011Q4

REPORT INFORMATION
  Report Type: 
  Country: None (occurrence: None)
  Receive Date: 20111202
  Receipt Date: 20111128
  Transmission Date: 20120403
  Serious: Yes (Life-Threatening, Hospitalization, Other)
  Sender: FDA-Public Use
  Company Number: PHHY2011FR34789

PATIENT
  Sex: Female

DRUGS (1)
  1. EXTAVIA [Suspect]
     Indication: MULTIPLE SCLEROSIS
     Dosage: 1 ML, QOD (PER INJECTION)
     Route: 058
     Dates: start: 20110401

REACTIONS (10)
  - STRESS [None]
  - ABDOMINAL PAIN UPPER [None]
  - INFECTIOUS PERITONITIS [None]
  - FEELING DRUNK [None]
  - ANXIETY [None]
  - URINARY INCONTINENCE [None]
  - BALANCE DISORDER [None]
  - DRUG INEFFECTIVE [None]
  - GAIT DISTURBANCE [None]
  - DIPLOPIA [None]
